FAERS Safety Report 12364203 (Version 2)
Quarter: 2016Q2

REPORT INFORMATION
  Report Type: Report from Study
  Country: MX (occurrence: MX)
  Receive Date: 20160512
  Receipt Date: 20160519
  Transmission Date: 20160815
  Serious: Yes (Other)
  Sender: FDA-Public Use
  Company Number: PHHY2016MX046720

PATIENT
  Age: 79 Year
  Sex: Male

DRUGS (6)
  1. EXELON PATCH [Suspect]
     Active Substance: RIVASTIGMINE
     Indication: CEREBRAL INFARCTION
     Dosage: 9.5 MG (10CM2 PATCH), QD
     Route: 062
     Dates: start: 20121227
  2. EXELON PATCH [Suspect]
     Active Substance: RIVASTIGMINE
     Dosage: 9.5 MG (10CM2 PATCH), QD
     Route: 062
  3. EXELON PATCH [Suspect]
     Active Substance: RIVASTIGMINE
     Indication: SENILE DEMENTIA
     Dosage: 13.3 MG (15 CM2 PATCH), QD
     Route: 062
  4. EXELON [Suspect]
     Active Substance: RIVASTIGMINE TARTRATE
     Indication: SENILE DEMENTIA
     Dosage: UNK
     Route: 065
  5. EXELON PATCH [Suspect]
     Active Substance: RIVASTIGMINE
     Dosage: 9.5 MG (10CM2 PATCH), QOD
     Route: 062
  6. TAMSULOSIN [Concomitant]
     Active Substance: TAMSULOSIN
     Indication: PRODUCT USED FOR UNKNOWN INDICATION
     Dosage: 4 MG, UNK
     Route: 065

REACTIONS (7)
  - Application site discolouration [Unknown]
  - Application site pruritus [Unknown]
  - Application site erythema [Unknown]
  - Product use issue [Unknown]
  - Inappropriate schedule of drug administration [Recovered/Resolved]
  - Product adhesion issue [Unknown]
  - Cataract [Unknown]

NARRATIVE: CASE EVENT DATE: 20121227
